FAERS Safety Report 6112815-2 (Version None)
Quarter: 2009Q1

REPORT INFORMATION
  Report Type: 
  Country: None (occurrence: None)
  Receive Date: 20090312
  Receipt Date: 20090312
  Transmission Date: 20090719
  Serious: Yes (Other)
  Sender: FDA-Public Use
  Company Number: US-PFIZER INC-2008152158

PATIENT
  Sex: Female
  Weight: 55.782 kg

DRUGS (2)
  1. CHANTIX [Suspect]
     Indication: SMOKING CESSATION THERAPY
     Dosage: 1 MG, 2X/DAY
     Route: 048
     Dates: start: 20080930, end: 20081009
  2. AMLODIPINE BESILATE [Concomitant]
     Dosage: 10 MG, UNK

REACTIONS (2)
  - HYSTERECTOMY [None]
  - NERVOUSNESS [None]
